FAERS Safety Report 6834599-2 (Version None)
Quarter: 2010Q3

REPORT INFORMATION
  Report Type: 
  Country: None (occurrence: None)
  Receive Date: 20100712
  Receipt Date: 20070613
  Transmission Date: 20110219
  Serious: Yes (Other)
  Sender: FDA-Public Use
  Company Number: US-PFIZER INC-2007033293

PATIENT
  Age: 78 Year
  Sex: Female
  Weight: 57.2 kg

DRUGS (9)
  1. CHANTIX [Suspect]
     Indication: SMOKING CESSATION THERAPY
     Dates: start: 20070312, end: 20070420
  2. OTHER DERMATOLOGICAL PREPARATIONS [Suspect]
     Indication: RASH
     Dates: start: 20070401, end: 20070401
  3. CORTICOSTEROIDS [Suspect]
  4. ANTIHISTAMINES [Suspect]
  5. CETIRIZINE HCL [Concomitant]
  6. LOTREL [Concomitant]
  7. LOVASTATIN [Concomitant]
  8. MULTI-VITAMINS [Concomitant]
  9. STOOL SOFTENER [Concomitant]

REACTIONS (7)
  - ABNORMAL DREAMS [None]
  - CONSTIPATION [None]
  - FATIGUE [None]
  - MALAISE [None]
  - NAUSEA [None]
  - PRURITUS [None]
  - RASH [None]
